FAERS Safety Report 15764016 (Version 1)
Quarter: 2018Q4

REPORT INFORMATION
  Report Type: Spontaneous
  Country: JP (occurrence: JP)
  Receive Date: 20181227
  Receipt Date: 20181227
  Transmission Date: 20190205
  Serious: Yes (Hospitalization)
  Sender: FDA-Public Use
  Company Number: JP-ASTRAZENECA-2018SF53349

PATIENT
  Age: 69 Year

DRUGS (3)
  1. TAKECAB [Concomitant]
     Active Substance: VONOPRAZAN FUMURATE
     Dosage: DOSE UNKNOWN
  2. LOXONIN [Concomitant]
     Active Substance: LOXOPROFEN SODIUM
     Dosage: DOSE UNKNOWN
     Route: 048
  3. IMFINZI [Suspect]
     Active Substance: DURVALUMAB
     Indication: NON-SMALL CELL LUNG CANCER
     Route: 042
     Dates: start: 20180928, end: 20181026

REACTIONS (1)
  - Myelitis [Recovered/Resolved]

NARRATIVE: CASE EVENT DATE: 20181106
